FAERS Safety Report 7524190-7 (Version None)
Quarter: 2011Q2

REPORT INFORMATION
  Report Type: 
  Country: None (occurrence: None)
  Receive Date: 20110606
  Receipt Date: 20110526
  Transmission Date: 20111010
  Serious: No
  Sender: FDA-Public Use
  Company Number: US-BIOGENIDEC-2011BI018106

PATIENT
  Age: 40 Year
  Sex: Female

DRUGS (1)
  1. TYSABRI [Suspect]
     Indication: MULTIPLE SCLEROSIS
     Route: 042
     Dates: start: 20100317

REACTIONS (11)
  - ASTHENIA [None]
  - MULTIPLE SCLEROSIS RELAPSE [None]
  - FATIGUE [None]
  - CHEST DISCOMFORT [None]
  - DYSPNOEA [None]
  - DISSOCIATION [None]
  - PAIN IN EXTREMITY [None]
  - DIZZINESS [None]
  - VISUAL IMPAIRMENT [None]
  - PARAESTHESIA [None]
  - FEELING HOT [None]
